FAERS Safety Report 14221620 (Version 6)
Quarter: 2020Q2

REPORT INFORMATION
  Report Type: Report from Study
  Country: US (occurrence: US)
  Receive Date: 20171124
  Receipt Date: 20200612
  Transmission Date: 20200713
  Serious: Yes (Hospitalization, Other)
  Sender: FDA-Public Use
  Company Number: US-ACTELION-A-US2016-133806

PATIENT
  Sex: Female
  Weight: 72.56 kg

DRUGS (4)
  1. FLECAINIDE [Concomitant]
     Active Substance: FLECAINIDE
  2. OPSUMIT [Suspect]
     Active Substance: MACITENTAN
     Indication: PULMONARY ARTERIAL HYPERTENSION
     Dosage: 10 MG, QD
     Route: 048
     Dates: start: 2015
  3. DILTIAZEM. [Concomitant]
     Active Substance: DILTIAZEM
  4. SILDENAFIL. [Suspect]
     Active Substance: SILDENAFIL
     Indication: PRODUCT USED FOR UNKNOWN INDICATION
     Dosage: UNK
     Route: 065
     Dates: start: 202001

REACTIONS (10)
  - Urinary tract infection [Unknown]
  - Pollakiuria [Unknown]
  - Seasonal allergy [Unknown]
  - Atrial fibrillation [Unknown]
  - Dyspnoea [Recovering/Resolving]
  - Cough [Unknown]
  - Constipation [Recovering/Resolving]
  - Cardioversion [Unknown]
  - Nausea [Unknown]
  - Fatigue [Unknown]
